FAERS Safety Report 8186827-1 (Version None)
Quarter: 2012Q1

REPORT INFORMATION
  Report Type: 
  Country: None (occurrence: None)
  Receive Date: 20120306
  Receipt Date: 20120305
  Transmission Date: 20120608
  Serious: Yes (Life-Threatening, Other)
  Sender: FDA-Public Use
  Company Number: JP-B.I. PHARMACEUTICALS,INC./RIDGEFIELD-2012-BP-04139NB

PATIENT
  Age: 69 Year
  Sex: Female
  Weight: 40 kg

DRUGS (9)
  1. LIVACT [Concomitant]
     Dosage: 12.45 G
     Route: 048
  2. LANSOPRAZOLE [Concomitant]
     Dosage: 15 MG
     Route: 048
  3. TEGRETOL [Concomitant]
     Dosage: 10 MG
     Route: 048
  4. PRADAXA [Suspect]
     Indication: ATRIAL FIBRILLATION
     Dosage: 220 MG
     Route: 048
     Dates: start: 20120217, end: 20120303
  5. KEPPRA [Concomitant]
     Dosage: 1000 MG
     Route: 048
  6. LASIX [Concomitant]
     Dosage: 20 MG
     Route: 048
  7. ALDACTONE [Concomitant]
     Dosage: 25 MG
     Route: 048
  8. CARVEDILOL [Concomitant]
     Dosage: 1.25 MG
     Route: 048
  9. DEPAS [Concomitant]
     Dosage: 1 MG
     Route: 048

REACTIONS (2)
  - CEREBRAL HAEMORRHAGE [None]
  - ALTERED STATE OF CONSCIOUSNESS [None]
